FAERS Safety Report 7711980-0 (Version None)
Quarter: 2011Q3

REPORT INFORMATION
  Report Type: 
  Country: None (occurrence: None)
  Receive Date: 20110826
  Receipt Date: 20110817
  Transmission Date: 20111222
  Serious: Yes (Hospitalization)
  Sender: FDA-Public Use
  Company Number: US-JNJFOC-20110808174

PATIENT
  Sex: Female

DRUGS (5)
  1. IMURAN [Concomitant]
     Indication: CROHN'S DISEASE
     Route: 048
  2. FOLIC ACID [Concomitant]
     Indication: CROHN'S DISEASE
     Route: 048
  3. VITAMIN B-12 [Concomitant]
     Indication: BLOOD DISORDER
     Route: 048
  4. REMICADE [Suspect]
     Indication: CROHN'S DISEASE
     Route: 042
  5. SPIRONOLACTONE [Concomitant]
     Indication: CROHN'S DISEASE
     Route: 048

REACTIONS (7)
  - CROHN'S DISEASE [None]
  - THROAT IRRITATION [None]
  - NAUSEA [None]
  - LUNG NEOPLASM MALIGNANT [None]
  - ORAL DISCOMFORT [None]
  - HYPOTENSION [None]
  - HAEMORRHOIDS [None]
